FAERS Safety Report 5501987-6 (Version None)
Quarter: 2007Q4

REPORT INFORMATION
  Report Type: 
  Country: None (occurrence: None)
  Receive Date: 20071030
  Receipt Date: 20071030
  Transmission Date: 20080405
  Serious: Yes (Other)
  Sender: FDA-Public Use
  Company Number: A0690555A

PATIENT

DRUGS (2)
  1. AVANDIA [Suspect]
     Route: 048
  2. UNKNOWN [Concomitant]

REACTIONS (1)
  - MYOCARDIAL INFARCTION [None]
